FAERS Safety Report 5025523-6 (Version None)
Quarter: 2006Q2

REPORT INFORMATION
  Report Type: 
  Country: None (occurrence: None)
  Receive Date: 20060607
  Receipt Date: 20060523
  Transmission Date: 20061013
  Serious: Yes (Hospitalization)
  Sender: FDA-Public Use
  Company Number: DK200603007283

PATIENT
  Age: 74 Year
  Sex: Male
  Weight: 87 kg

DRUGS (3)
  1. FORTEO [Suspect]
     Indication: OSTEOPOROSIS
     Dosage: 20 UG, DAILY (1/D), SUBCUTANEOUS
     Route: 058
     Dates: start: 20060317
  2. FORTEO [Concomitant]
  3. LOSEC (OMEPRAZOLE) [Concomitant]

REACTIONS (3)
  - CEREBRAL THROMBOSIS [None]
  - FATIGUE [None]
  - SWELLING FACE [None]
